FAERS Safety Report 8816969 (Version 1)
Quarter: 2012Q4

REPORT INFORMATION
  Report Type: Spontaneous
  Country: MX (occurrence: None)
  Receive Date: 20121002
  Receipt Date: 20121002
  Transmission Date: 20130627
  Serious: Yes (Hospitalization)
  Sender: FDA-Public Use
  Company Number: DSU-2012-07645

PATIENT
  Age: 62 Year
  Sex: Male

DRUGS (1)
  1. OLMESARTAN MEDOXOMIL [Suspect]
     Indication: HYPERTENSION
     Route: 048

REACTIONS (5)
  - Back pain [None]
  - Treatment noncompliance [None]
  - Drug administration error [None]
  - Convulsion [None]
  - Syncope [None]
